FAERS Safety Report 5060621-2 (Version None)
Quarter: 2006Q3

REPORT INFORMATION
  Report Type: 
  Country: None (occurrence: None)
  Receive Date: 20060720
  Receipt Date: 20060720
  Transmission Date: 20061208
  Serious: Yes (Other)
  Sender: FDA-Public Use
  Company Number: None

PATIENT
  Age: 65 Year
  Sex: Male
  Weight: 140 kg

DRUGS (1)
  1. DAPTOMYCIN 500 MG CUBIST [Suspect]
     Indication: ENDOCARDITIS
     Dosage: 750 MG DAILY IV
     Route: 042
     Dates: start: 20060629, end: 20060717

REACTIONS (1)
  - BLOOD CREATINE PHOSPHOKINASE INCREASED [None]
